FAERS Safety Report 4270030-1 (Version None)
Quarter: 2004Q1

REPORT INFORMATION
  Report Type: 
  Country: None (occurrence: None)
  Receive Date: 20040113
  Receipt Date: 20040113
  Transmission Date: 20041129
  Serious: Yes (Life-Threatening, Hospitalization)
  Sender: FDA-Public Use
  Company Number: None

PATIENT
  Age: 42 Year
  Sex: Male

DRUGS (3)
  1. ENBREL [Suspect]
     Indication: RHEUMATOID ARTHRITIS
     Dosage: 25 MG SQ QWK
     Dates: start: 20020801, end: 20030801
  2. ARAVA [Suspect]
     Indication: RHEUMATOID ARTHRITIS
     Dosage: 20 MG QD
     Dates: start: 20000101
  3. METHOTREXATE [Concomitant]

REACTIONS (3)
  - DISEASE RECURRENCE [None]
  - IMPLANT SITE INFECTION [None]
  - PNEUMOCOCCAL INFECTION [None]
